FAERS Safety Report 15675842 (Version 1)
Quarter: 2018Q4

REPORT INFORMATION
  Report Type: Spontaneous
  Country: US (occurrence: US)
  Receive Date: 20181130
  Receipt Date: 20181130
  Transmission Date: 20190205
  Serious: Yes (Other)
  Sender: FDA-Public Use
  Company Number: US-ELI_LILLY_AND_COMPANY-US201811013116

PATIENT
  Sex: Male

DRUGS (2)
  1. HUMALOG [Suspect]
     Active Substance: INSULIN LISPRO
     Indication: PRODUCT USED FOR UNKNOWN INDICATION
     Dosage: UNK, UNKNOWN
     Route: 065
  2. LANTUS [Concomitant]
     Active Substance: INSULIN GLARGINE
     Indication: TYPE 1 DIABETES MELLITUS

REACTIONS (9)
  - Blood glucose increased [Recovering/Resolving]
  - Keloid scar [Not Recovered/Not Resolved]
  - Arthropod bite [Recovering/Resolving]
  - Visual impairment [Not Recovered/Not Resolved]
  - Malaise [Recovering/Resolving]
  - Fluid retention [Not Recovered/Not Resolved]
  - Wrong dose [Unknown]
  - Weight decreased [Not Recovered/Not Resolved]
  - Product storage error [Unknown]

NARRATIVE: CASE EVENT DATE: 2017
